FAERS Safety Report 8368943-4 (Version None)
Quarter: 2012Q2

REPORT INFORMATION
  Report Type: 
  Country: None (occurrence: None)
  Receive Date: 20120516
  Receipt Date: 20120516
  Transmission Date: 20120825
  Serious: Yes (Hospitalization)
  Sender: FDA-Public Use
  Company Number: None

PATIENT
  Sex: Male
  Weight: 88 kg

DRUGS (6)
  1. PREDNISONE [Suspect]
     Dosage: 1200 MG
  2. ETOPOSIDE [Suspect]
     Dosage: 560 MG
  3. RITUXIMAB (MOAB C2B8 ANTI CD20,CHIMERIC) [Suspect]
     Dosage: 725 MG
  4. CYTOXAN [Suspect]
     Dosage: 2095 MG
  5. DOXORUBICIN HYDROCHLORIDE [Suspect]
     Dosage: 112 MG
  6. VINCRISTINE SULFATE [Suspect]
     Dosage: 3.12 MG

REACTIONS (2)
  - WHITE BLOOD CELL COUNT DECREASED [None]
  - FEBRILE NEUTROPENIA [None]
